FAERS Safety Report 16173273 (Version 2)
Quarter: 2019Q3

REPORT INFORMATION
  Report Type: Spontaneous
  Country: BE (occurrence: BE)
  Receive Date: 20190409
  Receipt Date: 20190717
  Transmission Date: 20191004
  Serious: Yes (Hospitalization, Other)
  Sender: FDA-Public Use
  Company Number: BE-ALKEM LABORATORIES LIMITED-BE-ALKEM-2018-11786

PATIENT
  Age: 52 Year
  Sex: Male

DRUGS (5)
  1. GLIQUIDONE [Concomitant]
     Active Substance: GLIQUIDONE
     Indication: TYPE 2 DIABETES MELLITUS
     Dosage: 90 MILLIGRAM, QD
     Route: 065
     Dates: start: 20060527, end: 20060626
  2. ATORVASTATIN CALCIUM. [Suspect]
     Active Substance: ATORVASTATIN CALCIUM
     Indication: HYPERCHOLESTEROLAEMIA
  3. METFORMIN HYDROCHLORIDE. [Suspect]
     Active Substance: METFORMIN HYDROCHLORIDE
     Indication: TYPE 2 DIABETES MELLITUS
     Dosage: 1700 MILLIGRAM, QD
     Route: 065
     Dates: start: 20060626
  4. GLIQUIDONE [Concomitant]
     Active Substance: GLIQUIDONE
     Dosage: 90 MILLIGRAM, QD
     Route: 065
     Dates: start: 20060722
  5. ATORVASTATIN CALCIUM. [Suspect]
     Active Substance: ATORVASTATIN CALCIUM
     Indication: HEPATIC STEATOSIS
     Dosage: 10 MILLIGRAM, QD
     Route: 065
     Dates: start: 20060527

REACTIONS (3)
  - Acute hepatic failure [Recovering/Resolving]
  - Hepatitis cholestatic [Recovering/Resolving]
  - Drug ineffective [Unknown]

NARRATIVE: CASE EVENT DATE: 20060722
